FAERS Safety Report 21017139 (Version 1)
Quarter: 2022Q2

REPORT INFORMATION
  Report Type: Spontaneous
  Country: ES (occurrence: ES)
  Receive Date: 20220628
  Receipt Date: 20220628
  Transmission Date: 20220721
  Serious: Yes (Hospitalization)
  Sender: FDA-Public Use
  Company Number: None

PATIENT
  Age: 50 Year
  Sex: Female

DRUGS (5)
  1. PREVYMIS [Suspect]
     Active Substance: LETERMOVIR
     Indication: Antiviral prophylaxis
     Dosage: 1-0-0
     Route: 048
     Dates: start: 20210315, end: 20210625
  2. BEMIPARIN SODIUM [Suspect]
     Active Substance: BEMIPARIN SODIUM
     Indication: Prophylaxis
     Dosage: 1 AMP /DAY
     Route: 058
     Dates: start: 20210314, end: 20210401
  3. THYMOCYTE IMMUNE GLOBULIN NOS [Suspect]
     Active Substance: THYMOCYTE IMMUNE GLOBULIN NOS
     Indication: Renal transplant
     Dosage: 375 MG IN 5 DOSES
     Route: 042
     Dates: start: 20210310, end: 20210312
  4. TACROLIMUS [Suspect]
     Active Substance: TACROLIMUS
     Indication: Renal transplant
     Dosage: 1.5 MILLIGRAM, QD
     Route: 048
     Dates: start: 20210310
  5. CELLCEPT [Suspect]
     Active Substance: MYCOPHENOLATE MOFETIL
     Indication: Renal transplant
     Dosage: 1-0-1
     Route: 048
     Dates: start: 20210316, end: 20210420

REACTIONS (1)
  - Pancytopenia [Recovering/Resolving]

NARRATIVE: CASE EVENT DATE: 20210401
